FAERS Safety Report 6905575-6 (Version None)
Quarter: 2010Q3

REPORT INFORMATION
  Report Type: 
  Country: None (occurrence: None)
  Receive Date: 20100804
  Receipt Date: 20100721
  Transmission Date: 20110219
  Serious: Yes (Death)
  Sender: FDA-Public Use
  Company Number: AU-MYLANLABS-2010S1013020

PATIENT
  Age: 32 Year
  Sex: Female

DRUGS (6)
  1. TRAMADOL HYDROCHLORIDE [Suspect]
     Route: 065
  2. DOXEPIN HCL [Suspect]
     Route: 065
  3. CODEINE [Suspect]
     Route: 065
  4. DIAZEPAM [Suspect]
     Route: 065
  5. NAPROXEN [Suspect]
     Route: 065
  6. PARACETAMOL [Suspect]
     Route: 065

REACTIONS (2)
  - DRUG TOXICITY [None]
  - SEROTONIN SYNDROME [None]
